FAERS Safety Report 23267808 (Version 1)
Quarter: 2023Q4

REPORT INFORMATION
  Report Type: Report from Study
  Country: KR (occurrence: KR)
  Receive Date: 20231206
  Receipt Date: 20231206
  Transmission Date: 20240110
  Serious: Yes (Death, Other)
  Sender: FDA-Public Use
  Company Number: KR-JNJFOC-20231207999

PATIENT
  Sex: Male

DRUGS (3)
  1. ZYTIGA [Suspect]
     Active Substance: ABIRATERONE ACETATE
     Indication: Hormone-dependent prostate cancer
     Route: 048
  2. PREDNISONE [Suspect]
     Active Substance: PREDNISONE
     Indication: Hormone-dependent prostate cancer
     Route: 048
  3. DOCETAXEL [Suspect]
     Active Substance: DOCETAXEL\DOCETAXEL ANHYDROUS
     Indication: Hormone-dependent prostate cancer
     Route: 048

REACTIONS (14)
  - Death [Fatal]
  - Adverse drug reaction [Unknown]
  - Hot flush [Unknown]
  - Oedema [Unknown]
  - Pain [Unknown]
  - Liver function test abnormal [Unknown]
  - Hyperglycaemia [Unknown]
  - Skin disorder [Unknown]
  - Diarrhoea [Unknown]
  - Fatigue [Unknown]
  - Anaemia [Unknown]
  - Constipation [Unknown]
  - Dyspnoea [Unknown]
  - Nausea [Unknown]
